FAERS Safety Report 25347395 (Version 1)
Quarter: 2025Q2

REPORT INFORMATION
  Report Type: Spontaneous
  Country: US (occurrence: US)
  Receive Date: 20250522
  Receipt Date: 20250522
  Transmission Date: 20250717
  Serious: No
  Sender: CALLIDITAS THERAPEUTICS AB
  Company Number: US-Calliditas-2024CAL02719

PATIENT
  Age: 45 Year
  Sex: Male

DRUGS (16)
  1. TARPEYO [Suspect]
     Active Substance: BUDESONIDE
     Indication: IgA nephropathy
     Route: 048
     Dates: start: 20240925
  2. SERTRALINE [Concomitant]
     Active Substance: SERTRALINE HYDROCHLORIDE
  3. TESTOSTERONE CYPIONATE [Concomitant]
     Active Substance: TESTOSTERONE CYPIONATE
  4. VITAMIN C [Concomitant]
     Active Substance: ASCORBIC ACID
  5. VITAMIN D3 [Concomitant]
     Active Substance: CHOLECALCIFEROL
  6. ZINC [Concomitant]
     Active Substance: ZINC
  7. FUROSEMIDE [Concomitant]
     Active Substance: FUROSEMIDE
  8. ALLOPURINOL [Concomitant]
     Active Substance: ALLOPURINOL
  9. ATORVASTATIN [Concomitant]
     Active Substance: ATORVASTATIN
  10. CHLORHEXIDINE [Concomitant]
     Active Substance: CHLORHEXIDINE
  11. CLOMIPRAMINE [Concomitant]
     Active Substance: CLOMIPRAMINE
  12. CLOTRIMAZOLE [Concomitant]
     Active Substance: CLOTRIMAZOLE
  13. FARXIGA [Concomitant]
     Active Substance: DAPAGLIFLOZIN PROPANEDIOL
  14. FENOFIBRATE [Concomitant]
     Active Substance: FENOFIBRATE
  15. LOVAZA [Concomitant]
     Active Substance: OMEGA-3-ACID ETHYL ESTERS
  16. VITAMINS [Concomitant]
     Active Substance: VITAMINS

REACTIONS (2)
  - Fluid retention [Not Recovered/Not Resolved]
  - Cellulitis [Unknown]

NARRATIVE: CASE EVENT DATE: 20241015
